FAERS Safety Report 14898388 (Version 2)
Quarter: 2018Q2

REPORT INFORMATION
  Report Type: Spontaneous
  Country: US (occurrence: US)
  Receive Date: 20180515
  Receipt Date: 20180517
  Transmission Date: 20180711
  Serious: No
  Sender: FDA-Public Use
  Company Number: US-SA-2018SA085738

PATIENT
  Age: 58 Year
  Sex: Male

DRUGS (3)
  1. TOUJEO [Suspect]
     Active Substance: INSULIN GLARGINE
     Indication: TYPE 2 DIABETES MELLITUS
     Dosage: DOSE:35 UNIT(S)
     Route: 051
     Dates: start: 201803
  2. SOLOSTAR [Suspect]
     Active Substance: DEVICE
     Indication: TYPE 2 DIABETES MELLITUS
     Dates: start: 201803
  3. TRESIBA [Concomitant]
     Active Substance: INSULIN DEGLUDEC

REACTIONS (7)
  - Feeling hot [Unknown]
  - Product use issue [Unknown]
  - Hyperhidrosis [Unknown]
  - Injection site pain [Unknown]
  - Injection site mass [Unknown]
  - Diarrhoea [Unknown]
  - Dyspepsia [Unknown]

NARRATIVE: CASE EVENT DATE: 201803
